FAERS Safety Report 13398800 (Version 2)
Quarter: 2017Q2

REPORT INFORMATION
  Report Type: Report from Study
  Country: US (occurrence: US)
  Receive Date: 20170403
  Receipt Date: 20170414
  Transmission Date: 20170830
  Serious: Yes (Hospitalization)
  Sender: FDA-Public Use
  Company Number: PHHO2017US006023

PATIENT
  Age: 10 Year
  Sex: Female
  Weight: 35.7 kg

DRUGS (11)
  1. CAFCIT [Concomitant]
     Active Substance: CAFFEINE CITRATE
     Dosage: 9 ML (180 MG TOTAL), QD
     Route: 048
     Dates: start: 20170217
  2. INC424 [Suspect]
     Active Substance: RUXOLITINIB
     Indication: ACUTE LYMPHOCYTIC LEUKAEMIA
     Dosage: 25 MG, BID
     Route: 048
     Dates: start: 20170220
  3. CAFFEINE. [Concomitant]
     Active Substance: CAFFEINE
     Dosage: 60 MG, QD, PRN
     Route: 048
     Dates: start: 20170301
  4. METHOTREXATE. [Suspect]
     Active Substance: METHOTREXATE
     Indication: ACUTE LYMPHOCYTIC LEUKAEMIA
     Dosage: 15 MG, ONCE/SINGLE
     Route: 037
     Dates: start: 20170313
  5. MERCAPTOPURINE. [Suspect]
     Active Substance: MERCAPTOPURINE
     Indication: ACUTE LYMPHOCYTIC LEUKAEMIA
     Dosage: 75 MG QD MONDAY-SATURDAY, 50 MG QD SUNDAY
     Route: 048
     Dates: start: 20170220
  6. ZOFRAN [Concomitant]
     Active Substance: ONDANSETRON HYDROCHLORIDE
     Indication: NAUSEA
     Dosage: 4MG, Q8H, PRN
     Route: 048
     Dates: start: 20170115
  7. CAFFEINE. [Concomitant]
     Active Substance: CAFFEINE
     Indication: HEADACHE
     Dosage: 60 MG, UNK
     Route: 048
     Dates: start: 20170201
  8. CAFCIT [Concomitant]
     Active Substance: CAFFEINE CITRATE
     Indication: HEADACHE
     Dosage: 20 MG/ML, UNK
     Route: 048
     Dates: start: 20170201
  9. VINCRISTINE [Suspect]
     Active Substance: VINCRISTINE
     Indication: ACUTE LYMPHOCYTIC LEUKAEMIA
     Dosage: 1.8 MG, ONCE/SINGLE
     Route: 042
  10. ZOFRAN [Concomitant]
     Active Substance: ONDANSETRON HYDROCHLORIDE
     Dosage: 4 MG/ML, UNK
     Route: 048
     Dates: start: 20170201
  11. BACTRIM [Concomitant]
     Active Substance: SULFAMETHOXAZOLE\TRIMETHOPRIM
     Indication: PRODUCT USED FOR UNKNOWN INDICATION
     Dosage: 1 TABLET (80 MG OF TRIMETHOPRIM TOTAL), BID, EVERY FRIDAY, SATURDAY AND SUNDAY
     Route: 048
     Dates: start: 20170220

REACTIONS (3)
  - Anaemia [Recovered/Resolved]
  - Fatigue [Unknown]
  - Tachycardia [Recovered/Resolved]

NARRATIVE: CASE EVENT DATE: 20170318
